FAERS Safety Report 8601177-4 (Version None)
Quarter: 2012Q3

REPORT INFORMATION
  Report Type: 
  Country: None (occurrence: None)
  Receive Date: 20120817
  Receipt Date: 20120814
  Transmission Date: 20120928
  Serious: Yes (Other)
  Sender: FDA-Public Use
  Company Number: PHEH2012US014673

PATIENT
  Sex: Female
  Weight: 74.83 kg

DRUGS (8)
  1. LISINOPRIL [Concomitant]
     Dosage: 20 MG, BID
     Route: 048
  2. GILENYA [Suspect]
     Dosage: 0.5 MG, QD
     Route: 048
     Dates: end: 20120810
  3. BUSPAR [Concomitant]
     Dosage: 1 DF, TID
     Route: 048
  4. TRAZODONE HCL [Concomitant]
     Dosage: 100 MG, BID
     Route: 048
  5. DEPAKOTE [Concomitant]
     Dosage: 500 MG, QHS
     Route: 048
  6. NUEDEXTA [Concomitant]
     Dosage: 10-20 MG, BID
     Route: 048
  7. GILENYA [Suspect]
     Indication: RELAPSING-REMITTING MULTIPLE SCLEROSIS
     Dosage: 0.5 MG, QD
     Route: 048
     Dates: start: 20120716
  8. RESTORIL [Concomitant]
     Dosage: 15 MG, QHS
     Route: 048

REACTIONS (7)
  - EYE BURNS [None]
  - STRESS [None]
  - ABDOMINAL DISCOMFORT [None]
  - BLOOD PRESSURE INCREASED [None]
  - HEART RATE INCREASED [None]
  - WEIGHT DECREASED [None]
  - FATIGUE [None]
